FAERS Safety Report 21795264 (Version 1)
Quarter: 2022Q4

REPORT INFORMATION
  Report Type: Spontaneous
  Country: US (occurrence: None)
  Receive Date: 20221228
  Receipt Date: 20221228
  Transmission Date: 20230112
  Serious: No
  Sender: FDA-Public Use
  Company Number: None

PATIENT
  Age: 57 Year
  Sex: Female
  Weight: 54.61 kg

DRUGS (4)
  1. IBRANCE [Suspect]
     Active Substance: PALBOCICLIB
     Indication: Breast cancer female
     Dosage: 75MG 21D ON 7D OFF  ORAL?
     Route: 048
  2. FLUTICASONE [Concomitant]
     Active Substance: FLUTICASONE
  3. METOPROLOL [Concomitant]
  4. OXYCODONE [Concomitant]
     Active Substance: OXYCODONE

REACTIONS (2)
  - White blood cell count decreased [None]
  - Therapy interrupted [None]
